FAERS Safety Report 9843342 (Version 1)
Quarter: 2013Q4

REPORT INFORMATION
  Report Type: Spontaneous
  Country: US (occurrence: None)
  Receive Date: 20131223
  Receipt Date: 20131223
  Transmission Date: 20140711
  Serious: Yes (Other)
  Sender: FDA-Public Use
  Company Number: 219394LEO

PATIENT
  Age: 59 Year
  Sex: Female

DRUGS (2)
  1. PICATO [Suspect]
     Indication: PRECANCEROUS CELLS PRESENT
     Route: 061
     Dates: start: 20121017, end: 20121019
  2. PICATO [Suspect]
     Indication: PROPHYLAXIS
     Route: 061
     Dates: start: 20121017, end: 20121019

REACTIONS (3)
  - Burning sensation [None]
  - Wrong technique in drug usage process [None]
  - Off label use [None]
